FAERS Safety Report 9036942 (Version 1)
Quarter: 2013Q1

REPORT INFORMATION
  Report Type: Report from Study
  Country: US (occurrence: US)
  Receive Date: 20130129
  Receipt Date: 20130129
  Transmission Date: 20140127
  Serious: No
  Sender: FDA-Public Use
  Company Number: US-ABBOTT-12P-163-0891834-00

PATIENT
  Age: 63 Year
  Sex: Female

DRUGS (14)
  1. HUMIRA 40 MG/0.8 ML PEN [Suspect]
     Indication: ANKYLOSING SPONDYLITIS
     Dates: start: 20111201
  2. PREDNISONE [Concomitant]
     Indication: PRODUCT USED FOR UNKNOWN INDICATION
     Dosage: WEANING DOWN TO 1 MG/MONTH
  3. PRILOSEC [Concomitant]
     Indication: GASTROOESOPHAGEAL REFLUX DISEASE
  4. PRILOSEC [Concomitant]
  5. RECLAST [Concomitant]
     Indication: OSTEOPENIA
     Dosage: INFUSION ANNUALLY
     Route: 042
  6. ATENOLOL [Concomitant]
     Indication: HYPERTENSION
  7. HYDROCHLOROTHIAZIDE [Concomitant]
     Indication: HYPERTENSION
  8. SIMVASTATIN [Concomitant]
     Indication: BLOOD CHOLESTEROL INCREASED
  9. HYDROMORPHONE [Concomitant]
     Indication: PAIN
  10. DIAZEPAM [Concomitant]
     Indication: MUSCLE SPASMS
  11. PHENERGAN [Concomitant]
     Indication: NAUSEA
  12. BENTYL [Concomitant]
     Indication: PAIN
  13. BENTYL [Concomitant]
     Indication: MUSCLE SPASMS
  14. BENTYL [Concomitant]
     Indication: CROHN^S DISEASE

REACTIONS (2)
  - Injection site erythema [Recovering/Resolving]
  - Injection site reaction [Recovering/Resolving]
